FAERS Safety Report 12522490 (Version 2)
Quarter: 2016Q3

REPORT INFORMATION
  Report Type: Report from Study
  Country: CO (occurrence: CO)
  Receive Date: 20160701
  Receipt Date: 20160705
  Transmission Date: 20161109
  Serious: Yes (Death, Other)
  Sender: FDA-Public Use
  Company Number: PHHY2016CO090707

PATIENT
  Age: 72 Year
  Sex: Female
  Weight: 65 kg

DRUGS (1)
  1. AFINITOR [Suspect]
     Active Substance: EVEROLIMUS
     Indication: BREAST CANCER
     Dosage: 10 MG, QD
     Route: 048
     Dates: start: 20160510

REACTIONS (14)
  - Hepatic cirrhosis [Unknown]
  - Headache [Unknown]
  - Respiratory arrest [Fatal]
  - Malaise [Unknown]
  - General physical health deterioration [Unknown]
  - Malignant neoplasm progression [Unknown]
  - Procedural pain [Unknown]
  - Back pain [Unknown]
  - Metastases to bone [Unknown]
  - Pain [Unknown]
  - Abdominal pain upper [Unknown]
  - Tumour pain [Unknown]
  - Gait disturbance [Unknown]
  - Procedural headache [Unknown]

NARRATIVE: CASE EVENT DATE: 20160623
